FAERS Safety Report 21701094 (Version 1)
Quarter: 2022Q4

REPORT INFORMATION
  Report Type: Spontaneous
  Country: US (occurrence: US)
  Receive Date: 20221208
  Receipt Date: 20221208
  Transmission Date: 20230112
  Serious: Yes (Death, Hospitalization)
  Sender: FDA-Public Use
  Company Number: US-PROCTER_AND_GAMBLE-GS22121142

PATIENT
  Age: 53 Year
  Sex: Male

DRUGS (1)
  1. ALCOHOL [Suspect]
     Active Substance: ALCOHOL

REACTIONS (18)
  - Cardiac arrest [Fatal]
  - Pulse absent [Fatal]
  - Anion gap increased [Fatal]
  - Metabolic acidosis [Fatal]
  - Blood sodium increased [Fatal]
  - Blood potassium increased [Fatal]
  - Blood bicarbonate decreased [Fatal]
  - Blood creatinine increased [Fatal]
  - Blood urea increased [Fatal]
  - Blood glucose increased [Fatal]
  - Blood lactic acid increased [Fatal]
  - Blood osmolarity increased [Fatal]
  - Blood ethanal increased [Fatal]
  - Blood pH decreased [Fatal]
  - Decorticate posture [Fatal]
  - Osmolar gap abnormal [Fatal]
  - Exposure via ingestion [Fatal]
  - Unresponsive to stimuli [Fatal]
